FAERS Safety Report 8869973 (Version 1)
Quarter: 2012Q4

REPORT INFORMATION
  Report Type: 
  Country: US (occurrence: US)
  Receive Date: 20121026
  Receipt Date: 20121026
  Transmission Date: 20130627
  Serious: No
  Sender: FDA-Public Use
  Company Number: US-AMGEN-USASP2012044015

PATIENT
  Age: 59 Year
  Sex: Female

DRUGS (4)
  1. ENBREL [Suspect]
     Indication: PRODUCT USED FOR UNKNOWN INDICATION
     Dosage: 50 mg, qwk
  2. FOLIC ACID [Concomitant]
     Dosage: UNK
  3. PRILOSEC                           /00661201/ [Concomitant]
     Dosage: 20 mg, UNK
  4. CALCIUM + VIT D [Concomitant]
     Dosage: UNK

REACTIONS (2)
  - Injection site erythema [Unknown]
  - Injection site swelling [Unknown]
